FAERS Safety Report 13567408 (Version 1)
Quarter: 2017Q2

REPORT INFORMATION
  Report Type: Spontaneous
  Country: US (occurrence: US)
  Receive Date: 20170519
  Receipt Date: 20170519
  Transmission Date: 20170830
  Serious: Yes (Death)
  Sender: FDA-Public Use
  Company Number: None

PATIENT
  Age: 86 Year
  Sex: Male

DRUGS (12)
  1. PROCRIT [Suspect]
     Active Substance: ERYTHROPOIETIN
     Indication: CHRONIC KIDNEY DISEASE
     Route: 058
     Dates: start: 20080416, end: 20170518
  2. PROCRIT [Suspect]
     Active Substance: ERYTHROPOIETIN
     Indication: ANAEMIA
     Route: 058
     Dates: start: 20080416, end: 20170518
  3. ZINC. [Concomitant]
     Active Substance: ZINC
  4. MIRTAZAPINE. [Concomitant]
     Active Substance: MIRTAZAPINE
  5. FLUDROCORTISONE [Concomitant]
     Active Substance: FLUDROCORTISONE
  6. PRAVASTATIN. [Concomitant]
     Active Substance: PRAVASTATIN
  7. MIDODRINE [Concomitant]
     Active Substance: MIDODRINE
  8. NORTHERA [Suspect]
     Active Substance: DROXIDOPA
     Route: 048
  9. WARFARIN [Concomitant]
     Active Substance: WARFARIN
  10. RENAVITE [Concomitant]
     Active Substance: ASCORBIC ACID\BIOTIN\CALCIUM PANTOTHENATE\CYANOCOBALAMIN\FOLIC ACID\NIACINAMIDE\PYRIDOXINE HYDROCHLORIDE\RIBOFLAVIN\THIAMINE MONONITRATE
  11. FIBASTERIDE [Concomitant]
  12. FLECTOR [Concomitant]
     Active Substance: DICLOFENAC EPOLAMINE

REACTIONS (1)
  - Death [None]

NARRATIVE: CASE EVENT DATE: 20170518
